FAERS Safety Report 5923042-3 (Version None)
Quarter: 2008Q4

REPORT INFORMATION
  Report Type: 
  Country: None (occurrence: None)
  Receive Date: 20081018
  Receipt Date: 20080930
  Transmission Date: 20090506
  Serious: Yes (Other)
  Sender: FDA-Public Use
  Company Number: US-PFIZER INC-2008082822

PATIENT
  Sex: Female
  Weight: 70.454 kg

DRUGS (5)
  1. CHANTIX [Suspect]
     Indication: SMOKING CESSATION THERAPY
     Dates: start: 20070101, end: 20070101
  2. LITHOBID [Concomitant]
     Indication: BIPOLAR II DISORDER
  3. CLONAZEPAM [Concomitant]
     Indication: BIPOLAR II DISORDER
  4. ARMOUR THYROID [Concomitant]
     Indication: AUTOIMMUNE THYROIDITIS
  5. GENOTROPIN [Concomitant]
     Indication: GROWTH HORMONE DEFICIENCY

REACTIONS (2)
  - DEPRESSION [None]
  - HYPOMANIA [None]
